FAERS Safety Report 16554850 (Version 1)
Quarter: 2019Q3

REPORT INFORMATION
  Report Type: Spontaneous
  Country: IR (occurrence: IR)
  Receive Date: 20190710
  Receipt Date: 20190710
  Transmission Date: 20191004
  Serious: Yes (Death, Other)
  Sender: FDA-Public Use
  Company Number: IR-BAUSCH-BL-2019-019249

PATIENT
  Age: 77 Year
  Sex: Male

DRUGS (1)
  1. DEXAMETHASONE. [Suspect]
     Active Substance: DEXAMETHASONE
     Indication: ARTHRALGIA
     Dosage: REGULARLY TOOK FOR MANY YEARS
     Route: 065

REACTIONS (3)
  - Prescription drug used without a prescription [Unknown]
  - Strongyloidiasis [Fatal]
  - Peptic ulcer [Unknown]
